FAERS Safety Report 10516610 (Version 1)
Quarter: 2014Q4

REPORT INFORMATION
  Report Type: Spontaneous
  Country: US (occurrence: US)
  Receive Date: 20141014
  Receipt Date: 20141014
  Transmission Date: 20150528
  Serious: No
  Sender: FDA-Public Use
  Company Number: US-TARO-2014P1003075

PATIENT
  Age: 8 Year
  Sex: Male
  Weight: 22.68 kg

DRUGS (4)
  1. LORATADINE SYRUP (LORATADINE ORAL SOLUTION USP) 5MG/5ML [Suspect]
     Active Substance: LORATADINE
     Route: 048
     Dates: start: 20140406, end: 20140406
  2. STEROID CREAM (CORTIZONE) [Concomitant]
     Dosage: PRN
  3. LORATADINE SYRUP (LORATADINE ORAL SOLUTION USP) 5MG/5ML [Suspect]
     Active Substance: LORATADINE
     Indication: HYPERSENSITIVITY
     Route: 048
     Dates: start: 20140313, end: 20140313
  4. GUMMY VITAMINS [Concomitant]
     Dates: start: 2008

REACTIONS (3)
  - Rash macular [Recovered/Resolved]
  - Product quality issue [Unknown]
  - Drug ineffective [Unknown]

NARRATIVE: CASE EVENT DATE: 20140314
